FAERS Safety Report 21663549 (Version 1)
Quarter: 2022Q4

REPORT INFORMATION
  Report Type: Report from Study
  Country: CO (occurrence: CO)
  Receive Date: 20221130
  Receipt Date: 20221130
  Transmission Date: 20230112
  Serious: Yes (Hospitalization)
  Sender: FDA-Public Use
  Company Number: CO-ABBVIE-4217684

PATIENT
  Age: 56 Year
  Sex: Female
  Weight: 85 kg

DRUGS (5)
  1. HUMIRA [Suspect]
     Active Substance: ADALIMUMAB
     Indication: Product used for unknown indication
     Dosage: FORM STRENGTH 40MG
     Route: 058
     Dates: start: 20161102
  2. HUMIRA [Suspect]
     Active Substance: ADALIMUMAB
  3. MESALAMINE [Concomitant]
     Active Substance: MESALAMINE
     Indication: Irritable bowel syndrome
     Route: 048
     Dates: start: 2013
  4. AZATHIOPRINE [Concomitant]
     Active Substance: AZATHIOPRINE
     Indication: Colitis
     Route: 048
     Dates: start: 2013
  5. AMOXICILLIN [Concomitant]
     Active Substance: AMOXICILLIN
     Indication: General symptom
     Route: 048
     Dates: start: 20221126

REACTIONS (6)
  - Irritable bowel syndrome [Recovering/Resolving]
  - Colitis [Recovering/Resolving]
  - Weight decreased [Unknown]
  - Colitis [Recovering/Resolving]
  - Haemorrhoids [Recovering/Resolving]
  - Unevaluable event [Unknown]

NARRATIVE: CASE EVENT DATE: 20220824
